FAERS Safety Report 18731252 (Version 1)
Quarter: 2021Q1

REPORT INFORMATION
  Report Type: Spontaneous
  Country: US (occurrence: US)
  Receive Date: 20210112
  Receipt Date: 20210112
  Transmission Date: 20210419
  Serious: No
  Sender: FDA-Public Use
  Company Number: US-PFIZER INC-2021009392

PATIENT
  Age: 58 Year
  Sex: Female
  Weight: 155 kg

DRUGS (11)
  1. FUROSEMIDE. [Concomitant]
     Active Substance: FUROSEMIDE
     Dosage: 20 MG, 3X/DAY (20MG 3 TIMES DAILY)
  2. TRAZODONE [Concomitant]
     Active Substance: TRAZODONE HYDROCHLORIDE
     Dosage: 100 MG, 1X/DAY (100MG AT NIGHT)
  3. PREGABALIN. [Concomitant]
     Active Substance: PREGABALIN
     Dosage: UNK UNK, 2X/DAY (75MG 1?2 CAPSULES BY MOUTH TWICE A DAY)
     Route: 048
  4. METAXALONE. [Suspect]
     Active Substance: METAXALONE
     Indication: SCOLIOSIS
     Dosage: 800 MG, 1X/DAY
     Dates: start: 2020, end: 20201114
  5. POTASSIUM CHLORIDE. [Concomitant]
     Active Substance: POTASSIUM CHLORIDE
     Dosage: 30 MEQ, DAILY (3 TABLETS DAILY)
  6. HYDROCODONE BITARTRATE AND ACETAMINOPHEN [Concomitant]
     Active Substance: ACETAMINOPHEN\HYDROCODONE BITARTRATE
     Dosage: UNK UNK, AS NEEDED (5MG/325MG ONE TABLET BY MOUTH EVRY 4 HOURS AS NEEDED)
     Route: 048
  7. CELEBREX [Concomitant]
     Active Substance: CELECOXIB
     Dosage: 200 MG, 2X/DAY (200MG TWICE A DAY)
  8. CYCLOBENZAPRINE. [Concomitant]
     Active Substance: CYCLOBENZAPRINE
     Dosage: 10 MG, AS NEEDED (1 TAB EVERY 8 HOURS AS NEEDED)
  9. SINGULAIR [Concomitant]
     Active Substance: MONTELUKAST SODIUM
     Dosage: 10 MG, 1X/DAY (10MG ONCE A DAY)
  10. ESTRADIOL. [Concomitant]
     Active Substance: ESTRADIOL
     Dosage: 5 MG, 1X/DAY (.5 MG ONCE DAILY)
  11. PRILOSEC [Concomitant]
     Active Substance: OMEPRAZOLE MAGNESIUM
     Dosage: 40 MG, 2X/DAY(40MG TWICE A DAY)

REACTIONS (7)
  - Drug hypersensitivity [Not Recovered/Not Resolved]
  - Off label use [Not Recovered/Not Resolved]
  - Intentional product misuse [Not Recovered/Not Resolved]
  - Flushing [Not Recovered/Not Resolved]
  - Erythema [Not Recovered/Not Resolved]
  - Somnolence [Not Recovered/Not Resolved]
  - Dyspnoea [Not Recovered/Not Resolved]

NARRATIVE: CASE EVENT DATE: 2020
